FAERS Safety Report 8432956-4 (Version None)
Quarter: 2012Q2

REPORT INFORMATION
  Report Type: 
  Country: None (occurrence: None)
  Receive Date: 20120613
  Receipt Date: 20120608
  Transmission Date: 20120825
  Serious: Yes (Hospitalization, Other)
  Sender: FDA-Public Use
  Company Number: FR-ROCHE-1070147

PATIENT
  Sex: Male

DRUGS (4)
  1. ALLOPURINOL [Concomitant]
  2. INDAPAMIDE [Concomitant]
  3. LUCENTIS [Suspect]
     Indication: AGE-RELATED MACULAR DEGENERATION
     Dosage: LAST DOSE TAKEN ON 05/APR/2012
     Route: 050
  4. LOSARTAN POTASSIUM AND HYDROCHLOROTHIAZIDE [Concomitant]

REACTIONS (2)
  - BUNDLE BRANCH BLOCK [None]
  - HYPOTHERMIA [None]
